FAERS Safety Report 6161511-4 (Version None)
Quarter: 2009Q2

REPORT INFORMATION
  Report Type: 
  Country: None (occurrence: None)
  Receive Date: 20090421
  Receipt Date: 20090415
  Transmission Date: 20091009
  Serious: Yes (Hospitalization, Other)
  Sender: FDA-Public Use
  Company Number: PHHY2009CA11657

PATIENT
  Age: 45 Year
  Sex: Female

DRUGS (3)
  1. CYCLOSPORINE [Suspect]
     Indication: RENAL TRANSPLANT
     Route: 065
  2. AZATHIOPRINE [Concomitant]
  3. PREDNISONE [Concomitant]

REACTIONS (8)
  - BLOOD CREATININE INCREASED [None]
  - ESCHERICHIA URINARY TRACT INFECTION [None]
  - MALACOPLAKIA VESICAE [None]
  - PLEURITIC PAIN [None]
  - RENAL FAILURE ACUTE [None]
  - RENAL GRAFT LOSS [None]
  - RENAL MASS [None]
  - URINE ANALYSIS ABNORMAL [None]
